FAERS Safety Report 9381920 (Version 1)
Quarter: 2013Q3

REPORT INFORMATION
  Report Type: Report from Study
  Country: JP (occurrence: JP)
  Receive Date: 20130703
  Receipt Date: 20130703
  Transmission Date: 20140515
  Serious: Yes (Hospitalization)
  Sender: FDA-Public Use
  Company Number: JP-VERTEX PHARMACEUTICALS INC-AE-2012-010244

PATIENT
  Age: 56 Year
  Sex: Female

DRUGS (9)
  1. VX-950 (TELAPREVIR) [Suspect]
     Indication: CHRONIC HEPATITIS C
     Dosage: 1500 MG, QD
     Route: 048
     Dates: start: 20120523, end: 20120813
  2. RIBAVIRIN [Concomitant]
     Indication: CHRONIC HEPATITIS C
     Dosage: 600 MG, QD
     Route: 048
     Dates: start: 20120523, end: 20120702
  3. RIBAVIRIN [Concomitant]
     Dosage: 400 MG, QD
     Route: 048
     Dates: start: 20120703, end: 20121022
  4. RIBAVIRIN [Concomitant]
     Dosage: 600 MG, QD
     Route: 048
     Dates: start: 20121023, end: 20121105
  5. PEGINTRON [Concomitant]
     Indication: CHRONIC HEPATITIS C
     Dosage: 1 ?G/KG, QW
     Route: 058
     Dates: start: 20120523, end: 20120529
  6. PEGINTRON [Concomitant]
     Dosage: 0.9 ?G/KG, QW
     Route: 058
     Dates: start: 20120530, end: 20120604
  7. PEGINTRON [Concomitant]
     Dosage: 0.8 ?G/KG, QW
     Route: 058
     Dates: start: 20120605, end: 20120903
  8. PEGINTRON [Concomitant]
     Dosage: 1.0 ?G/KG, QW
     Route: 058
     Dates: start: 20120904, end: 20121030
  9. TAKEPRON [Concomitant]
     Dosage: 30 MG, QD
     Route: 048
     Dates: end: 20121029

REACTIONS (1)
  - Herpes zoster [Recovered/Resolved]
